FAERS Safety Report 4695498-8 (Version None)
Quarter: 2005Q2

REPORT INFORMATION
  Report Type: 
  Country: None (occurrence: None)
  Receive Date: 20050608
  Receipt Date: 20050308
  Transmission Date: 20051028
  Serious: Yes (Other)
  Sender: FDA-Public Use
  Company Number: A03200500628

PATIENT
  Age: 66 Year
  Sex: Male
  Weight: 104.7809 kg

DRUGS (4)
  1. ELOXATIN [Suspect]
     Indication: COLON CANCER
     Dosage: MG 1/MONTH - INTRAVENOUS NOS
     Route: 042
     Dates: start: 20050307, end: 20050307
  2. ELOXATIN [Suspect]
     Indication: METASTASES TO LIVER
     Dosage: MG 1/MONTH - INTRAVENOUS NOS
     Route: 042
     Dates: start: 20050307, end: 20050307
  3. FLUOROURACIL [Concomitant]
  4. LEUCOVORIN [Concomitant]

REACTIONS (3)
  - FACE OEDEMA [None]
  - NASAL CONGESTION [None]
  - RASH PRURITIC [None]
